FAERS Safety Report 9712746 (Version 1)
Quarter: 2013Q4

REPORT INFORMATION
  Report Type: Spontaneous
  Country: US (occurrence: US)
  Receive Date: 20131126
  Receipt Date: 20131126
  Transmission Date: 20140711
  Serious: No
  Sender: FDA-Public Use
  Company Number: US-BRISTOL-MYERS SQUIBB COMPANY-19225739

PATIENT
  Age: 57 Year
  Sex: Female
  Weight: 122.9 kg

DRUGS (5)
  1. BYDUREON [Suspect]
     Indication: TYPE 2 DIABETES MELLITUS
  2. METFORMIN [Concomitant]
     Route: 048
  3. HUMALOG [Concomitant]
  4. INSULIN [Concomitant]
     Dosage: INSULIN  INJ/SQ 10 UNITS WITH EACH MEAL?80 UNITS INJ/SQ  QHS
     Route: 058
  5. LANTUS [Concomitant]

REACTIONS (2)
  - Injection site swelling [Not Recovered/Not Resolved]
  - Weight decreased [Recovered/Resolved]
